FAERS Safety Report 4878701-0 (Version None)
Quarter: 2005Q4

REPORT INFORMATION
  Report Type: 
  Country: None (occurrence: None)
  Receive Date: 20051209
  Receipt Date: 20050801
  Transmission Date: 20060501
  Serious: Yes (Other)
  Sender: FDA-Public Use
  Company Number: USA-2004-0016267

PATIENT
  Age: 34 Year
  Sex: Female

DRUGS (10)
  1. OXYCONTIN [Suspect]
     Indication: PAIN
  2. OXYIR CAPSULES [Concomitant]
  3. ZOLOFT [Concomitant]
  4. NORTRIPTYLINE HCL [Concomitant]
  5. NEURONTIN [Concomitant]
  6. DARVOCET-N 50 [Concomitant]
  7. ZENAFLEX [Concomitant]
  8. IBUPROFEN [Concomitant]
  9. XANAX [Concomitant]
  10. BACLOFEN [Concomitant]

REACTIONS (25)
  - ABDOMINAL PAIN UPPER [None]
  - AFFECTIVE DISORDER [None]
  - ANXIETY [None]
  - ASTHENIA [None]
  - CRYING [None]
  - DELUSIONAL DISORDER, UNSPECIFIED TYPE [None]
  - DEPRESSION [None]
  - DIPLOPIA [None]
  - DISTURBANCE IN ATTENTION [None]
  - DIZZINESS [None]
  - DRUG DEPENDENCE [None]
  - DRUG WITHDRAWAL SYNDROME [None]
  - DRY MOUTH [None]
  - DYSAESTHESIA [None]
  - MEMORY IMPAIRMENT [None]
  - MOBILITY DECREASED [None]
  - MYOFASCIAL PAIN SYNDROME [None]
  - OBSESSIVE-COMPULSIVE DISORDER [None]
  - PAIN [None]
  - PARANOIA [None]
  - RHINITIS ALLERGIC [None]
  - SOMATOFORM DISORDER [None]
  - SOMNOLENCE [None]
  - VISION BLURRED [None]
  - WEIGHT INCREASED [None]
